FAERS Safety Report 9200398 (Version 2)
Quarter: 2013Q2

REPORT INFORMATION
  Report Type: Spontaneous
  Country: IT (occurrence: IT)
  Receive Date: 20130329
  Receipt Date: 20130409
  Transmission Date: 20140414
  Serious: Yes (Hospitalization)
  Sender: FDA-Public Use
  Company Number: IT-ASTRAZENECA-2013SE19886

PATIENT
  Age: 15617 Day
  Sex: Female

DRUGS (6)
  1. SEROQUEL [Suspect]
     Indication: BIPOLAR DISORDER
     Route: 048
  2. SEROQUEL [Suspect]
     Indication: BIPOLAR DISORDER
     Dosage: UNSPECIFIED DOSE ONCE/SINGLE ADMINISTRATION
     Route: 048
     Dates: start: 20130316, end: 20130316
  3. SEROQUEL [Suspect]
     Indication: BIPOLAR DISORDER
     Route: 048
     Dates: end: 20130320
  4. EN [Suspect]
     Dosage: 20 DF DAILY, 1MG/ML
     Route: 048
  5. EN [Suspect]
     Dosage: 1MG/ML, UNSPECIFIED DOSE ONCE/SINGLE ADMINISTRATION
     Route: 048
     Dates: start: 20130316, end: 20130316
  6. EN [Suspect]
     Route: 048
     Dates: end: 20130320

REACTIONS (5)
  - Overdose [Unknown]
  - Coma [Recovered/Resolved]
  - Sopor [Recovered/Resolved]
  - Hypotension [Recovered/Resolved]
  - Sinus tachycardia [Recovered/Resolved]
